FAERS Safety Report 8914625 (Version 1)
Quarter: 2012Q4

REPORT INFORMATION
  Report Type: 
  Country: US (occurrence: US)
  Receive Date: 20121119
  Receipt Date: 20121119
  Transmission Date: 20130627
  Serious: No
  Sender: FDA-Public Use
  Company Number: US-BAYER-2012-120850

PATIENT

DRUGS (5)
  1. ALEVE CAPLET/TABLET,MIDOL EXTENDED RELIEF CAPLET [Suspect]
     Indication: HEADACHE
  2. IBUPROFEN [Concomitant]
  3. MENTHOL [Concomitant]
  4. MIGRAINE RELIEF [Concomitant]
  5. TENSION HEADACHE MED [Concomitant]

REACTIONS (2)
  - Nausea [None]
  - Drug ineffective [None]
